FAERS Safety Report 12562701 (Version 1)
Quarter: 2016Q3

REPORT INFORMATION
  Report Type: Report from Study
  Country: US (occurrence: US)
  Receive Date: 20160715
  Receipt Date: 20160715
  Transmission Date: 20161109
  Serious: Yes (Hospitalization, Other)
  Sender: FDA-Public Use
  Company Number: US-AMGEN-USASL2016089587

PATIENT
  Age: 58 Year
  Sex: Female

DRUGS (3)
  1. ENBREL [Suspect]
     Active Substance: ETANERCEPT
     Indication: PSORIATIC ARTHROPATHY
  2. ENBREL [Suspect]
     Active Substance: ETANERCEPT
     Indication: RHEUMATOID ARTHRITIS
     Dosage: 50 MG, 2 TIMES/WK
     Route: 065
     Dates: start: 201404
  3. ENBREL [Suspect]
     Active Substance: ETANERCEPT
     Indication: PSORIASIS

REACTIONS (8)
  - Injection site hypoaesthesia [Unknown]
  - Injection site pain [Unknown]
  - Psoriasis [Recovering/Resolving]
  - Injection site mass [Unknown]
  - Bronchitis [Unknown]
  - Rubber sensitivity [Unknown]
  - Sensory disturbance [Unknown]
  - Bone disorder [Unknown]

NARRATIVE: CASE EVENT DATE: 201404
